FAERS Safety Report 24835237 (Version 1)
Quarter: 2025Q1

REPORT INFORMATION
  Report Type: Spontaneous
  Country: US (occurrence: None)
  Receive Date: 20250111
  Receipt Date: 20250111
  Transmission Date: 20250409
  Serious: Yes (Other)
  Sender: FDA-CTU
  Company Number: None

PATIENT
  Sex: Female

DRUGS (13)
  1. ZOLEDRONIC ACID [Suspect]
     Active Substance: ZOLEDRONIC ACID
     Route: 042
     Dates: start: 20230817
  2. CODEINE [Suspect]
     Active Substance: CODEINE
  3. ASPIRIN [Concomitant]
     Active Substance: ASPIRIN
  4. BUPROPION TAB 150MG SR [Concomitant]
  5. D-2000 MAXIMUM STRENGTH [Concomitant]
  6. ESCITALOPRAM [Concomitant]
     Active Substance: ESCITALOPRAM OXALATE
  7. IRBESARTAN TAB 75MG [Concomitant]
  8. IRBESARTAN TAB 75MG [Concomitant]
  9. LEVOTHYROXIN TAB 75MCG [Concomitant]
  10. PANTOPRAZOLE TAB 40MG [Concomitant]
  11. ROSUVASTATIN [Concomitant]
     Active Substance: ROSUVASTATIN
  12. VITAMIN D3 [Concomitant]
     Active Substance: CHOLECALCIFEROL
  13. VITAMIN D3 SUPER STRENGTH [Concomitant]

REACTIONS (2)
  - Hallucination [None]
  - Infection [None]
